FAERS Safety Report 8506743-2 (Version None)
Quarter: 2012Q3

REPORT INFORMATION
  Report Type: 
  Country: None (occurrence: None)
  Receive Date: 20120712
  Receipt Date: 20120709
  Transmission Date: 20120928
  Serious: No
  Sender: FDA-Public Use
  Company Number: US-PFIZER INC-2012164375

PATIENT
  Sex: Female
  Weight: 48 kg

DRUGS (2)
  1. RAPAMUNE [Suspect]
     Indication: LYMPHANGIOLEIOMYOMATOSIS
     Dosage: 1 MG, DAILY
     Dates: start: 20120127
  2. MULTI-VITAMINS [Concomitant]
     Dosage: UNK

REACTIONS (6)
  - ABDOMINAL DISCOMFORT [None]
  - URINE OUTPUT DECREASED [None]
  - GASTROINTESTINAL DISORDER [None]
  - CONSTIPATION [None]
  - DECREASED APPETITE [None]
  - ABDOMINAL DISTENSION [None]
